FAERS Safety Report 6807463-2 (Version None)
Quarter: 2010Q2

REPORT INFORMATION
  Report Type: 
  Country: None (occurrence: None)
  Receive Date: 20100629
  Receipt Date: 20081003
  Transmission Date: 20101027
  Serious: No
  Sender: FDA-Public Use
  Company Number: US-PFIZER INC-2008083963

PATIENT
  Sex: Female
  Weight: 68.181 kg

DRUGS (3)
  1. XANAX [Suspect]
     Indication: PANIC ATTACK
     Dates: start: 19910101
  2. ZYRTEC-D 12 HOUR [Concomitant]
  3. PREMPRO [Concomitant]

REACTIONS (1)
  - MALAISE [None]
